FAERS Safety Report 10797358 (Version 2)
Quarter: 2015Q1

REPORT INFORMATION
  Report Type: Spontaneous
  Country: CA (occurrence: CA)
  Receive Date: 20150216
  Receipt Date: 20150318
  Transmission Date: 20150721
  Serious: Yes (Other)
  Sender: FDA-Public Use
  Company Number: CA-BAXTER-2015BAX004449

PATIENT
  Age: 76 Year
  Sex: Female

DRUGS (1)
  1. EXTRANEAL [Suspect]
     Active Substance: CALCIUM CHLORIDE\ICODEXTRIN\MAGNESIUM CHLORIDE\SODIUM CHLORIDE\SODIUM LACTATE
     Indication: RENAL FAILURE
     Route: 033
     Dates: start: 201403

REACTIONS (2)
  - Subcutaneous abscess [Recovered/Resolved]
  - Dermatophytosis [Not Recovered/Not Resolved]

NARRATIVE: CASE EVENT DATE: 201407
